FAERS Safety Report 14410978 (Version 1)
Quarter: 2018Q1

REPORT INFORMATION
  Report Type: Spontaneous
  Country: US (occurrence: US)
  Receive Date: 20180119
  Receipt Date: 20180119
  Transmission Date: 20180509
  Serious: No
  Sender: FDA-Public Use
  Company Number: US-JNJFOC-20171210445

PATIENT
  Sex: Female

DRUGS (2)
  1. TOPIRAMATE. [Suspect]
     Active Substance: TOPIRAMATE
     Indication: PRODUCT USED FOR UNKNOWN INDICATION
     Route: 048
  2. TOPIRAMATE. [Suspect]
     Active Substance: TOPIRAMATE
     Indication: PRODUCT USED FOR UNKNOWN INDICATION
     Route: 048

REACTIONS (9)
  - Alopecia [Unknown]
  - Electrocardiogram abnormal [Unknown]
  - Memory impairment [Unknown]
  - Headache [Unknown]
  - Eye pain [Unknown]
  - Fall [Unknown]
  - Confusional state [Unknown]
  - Pain in extremity [Unknown]
  - Dysarthria [Unknown]
